FAERS Safety Report 6634524-3 (Version None)
Quarter: 2010Q1

REPORT INFORMATION
  Report Type: 
  Country: None (occurrence: None)
  Receive Date: 20100315
  Receipt Date: 20100308
  Transmission Date: 20100710
  Serious: Yes (Other)
  Sender: FDA-Public Use
  Company Number: BE-JNJCH-2010006288

PATIENT
  Age: 15 Year
  Sex: Female

DRUGS (1)
  1. NICOTINE [Suspect]
     Indication: SUICIDE ATTEMPT
     Dosage: TEXT:UNSPECIFIED
     Route: 062

REACTIONS (2)
  - DRUG TOXICITY [None]
  - OVERDOSE [None]
